FAERS Safety Report 11941414 (Version 2)
Quarter: 2016Q1

REPORT INFORMATION
  Report Type: Spontaneous
  Country: US (occurrence: US)
  Receive Date: 20160122
  Receipt Date: 20160301
  Transmission Date: 20160526
  Serious: Yes (Death, Hospitalization)
  Sender: FDA-Public Use
  Company Number: US-ACTELION-A-NJ2016-130191

PATIENT
  Age: 81 Year
  Sex: Female

DRUGS (2)
  1. XARELTO [Concomitant]
     Active Substance: RIVAROXABAN
  2. OPSUMIT [Suspect]
     Active Substance: MACITENTAN
     Indication: PULMONARY ARTERIAL HYPERTENSION
     Dosage: 10 MG, QD
     Route: 048
     Dates: start: 20151030, end: 20160114

REACTIONS (4)
  - Nasopharyngitis [Unknown]
  - Cardio-respiratory arrest [Fatal]
  - Respiratory distress [Fatal]
  - Abdominal cavity drainage [Unknown]

NARRATIVE: CASE EVENT DATE: 20160114
